FAERS Safety Report 19147648 (Version 1)
Quarter: 2021Q2

REPORT INFORMATION
  Report Type: Spontaneous
  Country: DE (occurrence: DE)
  Receive Date: 20210416
  Receipt Date: 20210416
  Transmission Date: 20210717
  Serious: Yes (Hospitalization)
  Sender: FDA-Public Use
  Company Number: NVSC2021DE081549

PATIENT
  Age: 77 Year
  Sex: Female

DRUGS (3)
  1. HYDROCORTISONE. [Suspect]
     Active Substance: HYDROCORTISONE
     Indication: PRODUCT USED FOR UNKNOWN INDICATION
     Dosage: 20 MG, QD (15 MG OF CORTISONE IN THE MORNING AND ANOTHER 5 MG AT NOON)
     Route: 065
  2. EUTHYROX [Suspect]
     Active Substance: LEVOTHYROXINE SODIUM
     Dosage: 50 UG
     Route: 065
  3. EUTHYROX [Suspect]
     Active Substance: LEVOTHYROXINE SODIUM
     Indication: HYPOTHYROIDISM
     Dosage: 75 UG (DOSE INCREASED)
     Route: 065
     Dates: start: 202103

REACTIONS (12)
  - Hair texture abnormal [Unknown]
  - Dry skin [Unknown]
  - Myalgia [Unknown]
  - Glucocorticoid deficiency [Unknown]
  - Confusional state [Unknown]
  - Fatigue [Unknown]
  - Dysphonia [Unknown]
  - Asthenia [Unknown]
  - Disturbance in attention [Unknown]
  - Arthralgia [Unknown]
  - Tri-iodothyronine free decreased [Unknown]
  - Memory impairment [Unknown]

NARRATIVE: CASE EVENT DATE: 20210308
